FAERS Safety Report 20709238 (Version 1)
Quarter: 2022Q2

REPORT INFORMATION
  Report Type: Spontaneous
  Country: US (occurrence: US)
  Receive Date: 20220414
  Receipt Date: 20220414
  Transmission Date: 20220720
  Serious: No
  Sender: FDA-Public Use
  Company Number: US-NOVAST LABORATORIES INC.-2021NOV000262

PATIENT

DRUGS (1)
  1. NEW DAY [Suspect]
     Active Substance: LEVONORGESTREL
     Indication: Post coital contraception
     Dosage: UNK, 1 TABLET
     Route: 048
     Dates: start: 20210511, end: 20210511

REACTIONS (3)
  - Pruritus [Unknown]
  - Erythema [Unknown]
  - Generalised oedema [Unknown]
